FAERS Safety Report 7117537-7 (Version None)
Quarter: 2010Q4

REPORT INFORMATION
  Report Type: 
  Country: None (occurrence: None)
  Receive Date: 20101122
  Receipt Date: 20101115
  Transmission Date: 20110411
  Serious: Yes (Other)
  Sender: FDA-Public Use
  Company Number: US-PFIZER INC-2010148538

PATIENT
  Sex: Female
  Weight: 52.608 kg

DRUGS (3)
  1. TOVIAZ [Suspect]
     Indication: HYPERTONIC BLADDER
     Dosage: 4 MG, DAILY
     Route: 048
     Dates: start: 20100701, end: 20101104
  2. EFFEXOR XR [Concomitant]
     Indication: CATAPLEXY
     Dosage: 75 MG, UNK
  3. AMLODIPINE BESYLATE/VALSARTAN [Concomitant]
     Indication: HYPERTENSION
     Dosage: 10/150 MG

REACTIONS (2)
  - BLOOD URINE PRESENT [None]
  - CYSTITIS [None]
